FAERS Safety Report 18157762 (Version 4)
Quarter: 2020Q4

REPORT INFORMATION
  Report Type: Spontaneous
  Country: US (occurrence: US)
  Receive Date: 20200817
  Receipt Date: 20201119
  Transmission Date: 20210113
  Serious: Yes (Other)
  Sender: FDA-Public Use
  Company Number: US-PFIZER INC-2020315705

PATIENT
  Age: 65 Year
  Sex: Female
  Weight: 92.99 kg

DRUGS (3)
  1. SERTRALINE HCL [Suspect]
     Active Substance: SERTRALINE HYDROCHLORIDE
     Indication: DEPRESSION
     Dosage: 50, UNKNOWN UNIT AND FREQUENCY
  2. SERTRALINE HCL [Suspect]
     Active Substance: SERTRALINE HYDROCHLORIDE
     Dosage: 150, UNKNOWN UNIT AND FREQUENCY
  3. SERTRALINE HCL [Suspect]
     Active Substance: SERTRALINE HYDROCHLORIDE
     Dosage: 100, UNKNOWN UNIT AND FREQUENCY

REACTIONS (2)
  - Drug ineffective [Recovered/Resolved]
  - Suicide attempt [Recovered/Resolved]
